FAERS Safety Report 9179259 (Version 1)
Quarter: 2013Q1

REPORT INFORMATION
  Report Type: Spontaneous
  Country: FR (occurrence: FR)
  Receive Date: 20130321
  Receipt Date: 20130321
  Transmission Date: 20140127
  Serious: Yes (Other)
  Sender: FDA-Public Use
  Company Number: FR-GLAXOSMITHKLINE-B0875647A

PATIENT
  Sex: Male

DRUGS (2)
  1. PAROXETINE HYDROCHLORIDE [Suspect]
     Indication: DEPRESSION
     Route: 048
     Dates: start: 201212
  2. DOGMATIL [Concomitant]
     Indication: PRODUCT USED FOR UNKNOWN INDICATION
     Route: 065
     Dates: start: 201302

REACTIONS (4)
  - Mental impairment [Not Recovered/Not Resolved]
  - Memory impairment [Not Recovered/Not Resolved]
  - Disturbance in attention [Not Recovered/Not Resolved]
  - Headache [Not Recovered/Not Resolved]
